FAERS Safety Report 5801339-5 (Version None)
Quarter: 2008Q2

REPORT INFORMATION
  Report Type: 
  Country: None (occurrence: None)
  Receive Date: 20080626
  Receipt Date: 20080303
  Transmission Date: 20081010
  Serious: Yes (Hospitalization)
  Sender: FDA-Public Use
  Company Number: 550627

PATIENT
  Age: 82 Year
  Sex: Male

DRUGS (2)
  1. XELODA [Suspect]
     Indication: COLON CANCER
     Dosage: 3500 MG DAILY
     Dates: start: 20071201
  2. COUMADIN [Concomitant]

REACTIONS (8)
  - ABDOMINAL PAIN UPPER [None]
  - ATRIAL FIBRILLATION [None]
  - DIARRHOEA [None]
  - GASTROOESOPHAGEAL REFLUX DISEASE [None]
  - PROTHROMBIN TIME PROLONGED [None]
  - SKIN EXFOLIATION [None]
  - STOMATITIS [None]
  - VOMITING [None]
